FAERS Safety Report 21296209 (Version 1)
Quarter: 2022Q3

REPORT INFORMATION
  Report Type: Report from Study
  Country: DE (occurrence: DE)
  Receive Date: 20220906
  Receipt Date: 20220906
  Transmission Date: 20221026
  Serious: Yes (Other)
  Sender: FDA-Public Use
  Company Number: DE-SUN PHARMACEUTICAL INDUSTRIES LTD-2022R1-353517

PATIENT
  Age: 39 Year
  Sex: Male

DRUGS (1)
  1. AMPHOTERICIN B [Suspect]
     Active Substance: AMPHOTERICIN B
     Indication: Hepatic echinococciasis
     Dosage: 3 MILLIGRAM/KILOGRAM, WEEKLY
     Route: 065

REACTIONS (1)
  - Disease progression [Unknown]
